FAERS Safety Report 6441202-2 (Version None)
Quarter: 2009Q4

REPORT INFORMATION
  Report Type: 
  Country: None (occurrence: None)
  Receive Date: 20091113
  Receipt Date: 20091113
  Transmission Date: 20100525
  Serious: Yes (Other)
  Sender: FDA-Public Use
  Company Number: None

PATIENT
  Age: 50 Year
  Sex: Female
  Weight: 86.1834 kg

DRUGS (1)
  1. HYDROXYCHLOROQUINE SULFATE [Suspect]
     Indication: SARCOIDOSIS
     Dosage: 1 TWICE DAILY PO
     Route: 048
     Dates: start: 20090915, end: 20091104

REACTIONS (4)
  - LIP SWELLING [None]
  - PRURITUS [None]
  - SKIN DISORDER [None]
  - SWELLING FACE [None]
